FAERS Safety Report 8528795-6 (Version None)
Quarter: 2012Q3

REPORT INFORMATION
  Report Type: 
  Country: None (occurrence: None)
  Receive Date: 20120723
  Receipt Date: 20120716
  Transmission Date: 20120928
  Serious: No
  Sender: FDA-Public Use
  Company Number: US-009507513-1207USA005277

PATIENT

DRUGS (1)
  1. NUVARING [Suspect]
     Dosage: UNK
     Route: 067
     Dates: start: 20070101

REACTIONS (3)
  - MEDICAL DEVICE DISCOMFORT [None]
  - DEVICE EXPULSION [None]
  - PRODUCT QUALITY ISSUE [None]
